FAERS Safety Report 25765003 (Version 1)
Quarter: 2025Q3

REPORT INFORMATION
  Report Type: Spontaneous
  Country: US (occurrence: US)
  Receive Date: 20250905
  Receipt Date: 20250905
  Transmission Date: 20251021
  Serious: Yes (Other)
  Sender: BAXTER
  Company Number: US-BAXTER-2025BAX020657

PATIENT
  Age: 38 Year
  Sex: Male

DRUGS (9)
  1. HEPARIN SODIUM [Suspect]
     Active Substance: HEPARIN SODIUM
     Indication: Anticoagulant therapy
     Route: 065
  2. DOBUTAMINE [Suspect]
     Active Substance: DOBUTAMINE HYDROCHLORIDE
     Indication: Resuscitation
     Route: 065
  3. PROTAMINE [Concomitant]
     Active Substance: PROTAMINE
     Indication: Procoagulant therapy
     Route: 042
  4. HYDROCORTISONE [Concomitant]
     Active Substance: HYDROCORTISONE
  5. DIPHENHYDRAMINE [Concomitant]
     Active Substance: DIPHENHYDRAMINE
  6. FAMOTIDINE [Concomitant]
     Active Substance: FAMOTIDINE
  7. ALBUTEROL [Concomitant]
     Active Substance: ALBUTEROL
  8. METHYLENE BLUE [Concomitant]
     Active Substance: METHYLENE BLUE
     Indication: Resuscitation
  9. VITAMIN B12 [Concomitant]
     Active Substance: CYANOCOBALAMIN
     Indication: Resuscitation

REACTIONS (2)
  - Haemorrhage [Unknown]
  - Ventricular dysfunction [Unknown]
